FAERS Safety Report 21492828 (Version 2)
Quarter: 2022Q4

REPORT INFORMATION
  Report Type: Spontaneous
  Country: US (occurrence: US)
  Receive Date: 20221021
  Receipt Date: 20221025
  Transmission Date: 20230113
  Serious: Yes (Other)
  Sender: FDA-Public Use
  Company Number: US-PFIZER INC-PV202200086492

PATIENT
  Age: 27 Year
  Sex: Female

DRUGS (2)
  1. MEKTOVI [Suspect]
     Active Substance: BINIMETINIB
     Dosage: 45 MG, 2X/DAY, (15 MG TABS TAKE 3 TABLETS BY MOUTH TWICE A DAY)
     Route: 048
  2. BRAFTOVI [Suspect]
     Active Substance: ENCORAFENIB
     Dosage: 450 MG, DAILY, (75 MG CAPSULES TAKE 6 CAPSULES BY MOUTH EVERY DAY)
     Route: 048

REACTIONS (1)
  - Brain operation [Unknown]
